FAERS Safety Report 10010777 (Version 2)
Quarter: 2014Q1

REPORT INFORMATION
  Report Type: Spontaneous
  Country: ES (occurrence: None)
  Receive Date: 20140311
  Receipt Date: 20140331
  Transmission Date: 20141002
  Serious: Yes (Hospitalization, Other)
  Sender: FDA-Public Use
  Company Number: AUR-APL-2014-02447

PATIENT
  Sex: 0

DRUGS (1)
  1. METFORMIN [Suspect]
     Indication: TYPE 2 DIABETES MELLITUS

REACTIONS (6)
  - Renal failure [None]
  - Lactic acidosis [None]
  - Blood sodium decreased [None]
  - Blood potassium increased [None]
  - Continuous haemodiafiltration [None]
  - Metabolic acidosis [None]
